FAERS Safety Report 17106135 (Version 3)
Quarter: 2020Q2

REPORT INFORMATION
  Report Type: Report from Study
  Country: US (occurrence: US)
  Receive Date: 20191203
  Receipt Date: 20200402
  Transmission Date: 20200713
  Serious: No
  Sender: FDA-Public Use
  Company Number: NVSC2019US056424

PATIENT
  Age: 78 Year
  Sex: Female

DRUGS (2)
  1. ENTRESTO [Suspect]
     Active Substance: SACUBITRIL\VALSARTAN
     Indication: PRODUCT USED FOR UNKNOWN INDICATION
     Dosage: 48 MG, BID
     Route: 048
     Dates: start: 201908
  2. ENTRESTO [Suspect]
     Active Substance: SACUBITRIL\VALSARTAN
     Indication: CARDIAC FAILURE CHRONIC
     Dosage: 97 MG, BID
     Route: 065
     Dates: start: 201905

REACTIONS (10)
  - Sinus congestion [Recovering/Resolving]
  - Peripheral artery thrombosis [Unknown]
  - Dizziness [Recovering/Resolving]
  - Upper respiratory tract congestion [Recovering/Resolving]
  - Cough [Recovering/Resolving]
  - Oropharyngeal discomfort [Recovering/Resolving]
  - Cardiovascular disorder [Unknown]
  - Blood pressure increased [Not Recovered/Not Resolved]
  - Skin lesion [Recovering/Resolving]
  - Productive cough [Recovering/Resolving]

NARRATIVE: CASE EVENT DATE: 201911
